FAERS Safety Report 13934212 (Version 2)
Quarter: 2017Q3

REPORT INFORMATION
  Report Type: Spontaneous
  Country: GB (occurrence: GB)
  Receive Date: 20170905
  Receipt Date: 20170911
  Transmission Date: 20171127
  Serious: Yes (Hospitalization)
  Sender: FDA-Public Use
  Company Number: GB-MYLANLABS-2017M1046446

PATIENT
  Age: 47 Year
  Sex: Female

DRUGS (3)
  1. CLOZARIL [Suspect]
     Active Substance: CLOZAPINE
     Indication: SCHIZOPHRENIA
     Dosage: UNK
     Route: 048
     Dates: start: 20050519
  2. CLOZARIL [Suspect]
     Active Substance: CLOZAPINE
     Dosage: 200 MG, ONCE
     Route: 048
     Dates: start: 20170724
  3. CLOZARIL [Suspect]
     Active Substance: CLOZAPINE
     Dosage: UNK
     Route: 048
     Dates: start: 2017

REACTIONS (5)
  - Treatment noncompliance [Recovered/Resolved]
  - Therapy cessation [Recovered/Resolved]
  - Drug dose titration not performed [Recovered/Resolved]
  - Somnolence [Recovered/Resolved]
  - Malaise [Unknown]

NARRATIVE: CASE EVENT DATE: 201707
